FAERS Safety Report 6653693-2 (Version None)
Quarter: 2010Q1

REPORT INFORMATION
  Report Type: 
  Country: None (occurrence: None)
  Receive Date: 20100326
  Receipt Date: 20090320
  Transmission Date: 20100710
  Serious: Yes (Death)
  Sender: FDA-Public Use
  Company Number: PL-PFIZER INC-2008074491

PATIENT
  Age: 71 Year
  Sex: Male
  Weight: 78 kg

DRUGS (8)
  1. IRINOTECAN HCL [Suspect]
     Indication: COLORECTAL CANCER
     Dosage: 349 MG, EVERY 2 WEEKS
     Dates: start: 20080407, end: 20080818
  2. BLINDED *NO SUBJECT DRUG [Suspect]
     Indication: COLORECTAL CANCER
     Dosage: 37.5 MG, 1X/DAY
     Route: 048
     Dates: start: 20080407, end: 20080829
  3. BLINDED *PLACEBO [Suspect]
     Indication: COLORECTAL CANCER
     Dosage: 37.5 MG, 1X/DAY
     Route: 048
     Dates: start: 20080407, end: 20080829
  4. BLINDED SUNITINIB MALATE [Suspect]
     Indication: COLORECTAL CANCER
     Dosage: 37.5 MG, 1X/DAY
     Route: 048
     Dates: start: 20080407, end: 20080829
  5. FLUOROURACIL [Suspect]
     Indication: COLORECTAL CANCER
     Dosage: 1 EVERY 2 WEEKS
     Dates: start: 20080407, end: 20080820
  6. CALCIUM FOLINATE [Suspect]
     Indication: COLORECTAL CANCER
     Dosage: 1 EVERY 2 WEEKS
     Dates: start: 20080407, end: 20080818
  7. FENTANYL CITRATE [Suspect]
     Indication: PAIN
     Dosage: 25 UG
     Dates: start: 20080803
  8. KETOPROFEN [Concomitant]
     Indication: PAIN
     Dosage: 50 MG, 2X/DAY
     Dates: start: 20080801, end: 20080804

REACTIONS (7)
  - CIRCULATORY COLLAPSE [None]
  - COLONIC OBSTRUCTION [None]
  - DRUG RESISTANCE [None]
  - HYPERBILIRUBINAEMIA [None]
  - HYPONATRAEMIA [None]
  - HYPOTENSION [None]
  - RESPIRATORY FAILURE [None]
